FAERS Safety Report 8012987-9 (Version None)
Quarter: 2011Q4

REPORT INFORMATION
  Report Type: 
  Country: None (occurrence: None)
  Receive Date: 20111229
  Receipt Date: 20111215
  Transmission Date: 20120403
  Serious: Yes (Hospitalization)
  Sender: FDA-Public Use
  Company Number: FR-CELGENEUS-056-50794-11122123

PATIENT
  Sex: Male

DRUGS (4)
  1. VALSARTAN [Concomitant]
     Indication: HYPERTENSION
     Dosage: 160 MILLIGRAM
     Route: 048
  2. VIDAZA [Suspect]
     Route: 058
     Dates: start: 20111107
  3. PROPRANOLOL [Concomitant]
     Indication: ESSENTIAL TREMOR
     Dosage: 120 MILLIGRAM
     Route: 048
  4. VIDAZA [Suspect]
     Dosage: 75 MILLIGRAM/SQ. METER
     Route: 041
     Dates: start: 20110412

REACTIONS (1)
  - CEREBRAL INFARCTION [None]
